FAERS Safety Report 4306762-6 (Version None)
Quarter: 2004Q1

REPORT INFORMATION
  Report Type: 
  Country: None (occurrence: None)
  Receive Date: 20040225
  Receipt Date: 20040209
  Transmission Date: 20041129
  Serious: Yes (Hospitalization, Other)
  Sender: FDA-Public Use
  Company Number: USA040258955

PATIENT
  Age: 62 Year
  Sex: Female

DRUGS (12)
  1. HUMALOG [Suspect]
     Indication: DIABETES MELLITUS
  2. HUMULIN N [Suspect]
     Indication: DIABETES MELLITUS
  3. POTASSIUM [Concomitant]
  4. SYNTHROID [Concomitant]
  5. LASIX [Concomitant]
  6. BEXTRA [Concomitant]
  7. FOLIC ACID [Concomitant]
  8. METHOTREXATE [Concomitant]
  9. OXYBUTON (OXYBUTYNIN HYDROCHLORIDE) [Concomitant]
  10. LOTREL [Concomitant]
  11. TOPROL-XL [Concomitant]
  12. ACIPHEX [Concomitant]

REACTIONS (2)
  - BRAIN OEDEMA [None]
  - CARDIAC OPERATION [None]
